FAERS Safety Report 22915069 (Version 5)
Quarter: 2025Q4

REPORT INFORMATION
  Report Type: Report from Study
  Country: EU (occurrence: EU)
  Receive Date: 20230907
  Receipt Date: 20251230
  Transmission Date: 20260117
  Serious: Yes (Other)
  Sender: CELLTRION
  Company Number: EU-CELLTRION INC.-2023RO017359

PATIENT

DRUGS (11)
  1. BEVACIZUMAB [Suspect]
     Active Substance: BEVACIZUMAB
     Indication: Hepatocellular carcinoma
     Dosage: 800 MILLIGRAM
     Route: 065
     Dates: start: 20230329
  2. ATEZOLIZUMAB [Suspect]
     Active Substance: ATEZOLIZUMAB
     Indication: Hepatocellular carcinoma
     Dosage: ON 02/AUG/2023, RECEIVED THE MOST RECENT DOSE OF STUDY DRUG PRIOR TO AE AND SAE, EVERY 8 WEEKS
     Route: 041
     Dates: start: 20230329
  3. NORVASC [Concomitant]
     Active Substance: AMLODIPINE BESYLATE
     Dosage: 5 MILLIGRAM, QD
  4. INDAPAMIDE\PERINDOPRIL ARGININE [Concomitant]
     Active Substance: INDAPAMIDE\PERINDOPRIL ARGININE
     Dosage: 5 MILLIGRAM, QD
  5. URSODIOL [Concomitant]
     Active Substance: URSODIOL
     Dosage: 0.5 DAY
     Dates: start: 20230621, end: 20230823
  6. ESSENTIALE N [PHOSPHOLIPIDS] [Concomitant]
     Dosage: UNK
  7. ESSENTIALE MAX [Concomitant]
     Dosage: 0.33 DAY
     Dates: start: 20230621, end: 20230823
  8. ARGININE-SORBITOL [Concomitant]
     Dosage: AS NECESSARY
     Dates: start: 20230823, end: 20230823
  9. BISOPROLOL FUMARATE [Concomitant]
     Active Substance: BISOPROLOL FUMARATE
     Dosage: 5 MILLIGRAM, QD
  10. SORAFENIB [Concomitant]
     Active Substance: SORAFENIB
     Dosage: UNK
     Dates: start: 20240109, end: 20240808
  11. CABOZANTINIB [Concomitant]
     Active Substance: CABOZANTINIB
     Dates: start: 20241206, end: 20250207

REACTIONS (4)
  - Liver injury [Recovered/Resolved]
  - Prurigo [Recovered/Resolved with Sequelae]
  - Hand dermatitis [Recovered/Resolved]
  - Intentional product use issue [Unknown]

NARRATIVE: CASE EVENT DATE: 20230416
